FAERS Safety Report 23146153 (Version 1)
Quarter: 2023Q4

REPORT INFORMATION
  Report Type: Report from Study
  Country: DE (occurrence: DE)
  Receive Date: 20231104
  Receipt Date: 20231104
  Transmission Date: 20240110
  Serious: Yes (Congenital Anomaly)
  Sender: FDA-Public Use
  Company Number: DE-VKT-000282

PATIENT
  Age: 33 Week

DRUGS (1)
  1. LEVETIRACETAM [Suspect]
     Active Substance: LEVETIRACETAM
     Indication: Foetal exposure during pregnancy
     Route: 064

REACTIONS (4)
  - Stillbirth [Unknown]
  - Febrile infection [Unknown]
  - Influenza [Unknown]
  - Foetal exposure during pregnancy [Unknown]
